FAERS Safety Report 6870485-X (Version None)
Quarter: 2010Q3

REPORT INFORMATION
  Report Type: 
  Country: None (occurrence: None)
  Receive Date: 20100723
  Receipt Date: 20100716
  Transmission Date: 20110219
  Serious: No
  Sender: FDA-Public Use
  Company Number: US-BIOGENIDEC-2010BI024732

PATIENT
  Age: 52 Year
  Sex: Female

DRUGS (2)
  1. TYSABRI [Suspect]
     Indication: MULTIPLE SCLEROSIS
     Route: 042
     Dates: start: 20050207, end: 20050225
  2. TYSABRI [Suspect]
     Route: 042
     Dates: start: 20070207

REACTIONS (8)
  - ANKLE FRACTURE [None]
  - EXCORIATION [None]
  - FALL [None]
  - HEARING IMPAIRED [None]
  - LOWER LIMB FRACTURE [None]
  - MEMORY IMPAIRMENT [None]
  - PYREXIA [None]
  - VISUAL IMPAIRMENT [None]
